FAERS Safety Report 6783596-4 (Version None)
Quarter: 2010Q2

REPORT INFORMATION
  Report Type: 
  Country: None (occurrence: None)
  Receive Date: 20100622
  Receipt Date: 20100518
  Transmission Date: 20101027
  Serious: Yes (Other)
  Sender: FDA-Public Use
  Company Number: JP-ROCHE-606823

PATIENT
  Sex: Female
  Weight: 53.8 kg

DRUGS (4)
  1. TOCILIZUMAB [Suspect]
     Indication: RHEUMATOID ARTHRITIS
     Route: 041
     Dates: start: 20081208, end: 20081208
  2. PROGRAF [Concomitant]
     Route: 048
  3. CELECOXIB [Concomitant]
     Dosage: DRUG: CELECOX
     Route: 048
  4. COTRIM [Concomitant]
     Dosage: DOSE FORM: ORAL FORMULATION (NOT OTHERWISE SPECIFIED)
     Route: 048

REACTIONS (1)
  - SUBARACHNOID HAEMORRHAGE [None]
